FAERS Safety Report 4720513-2 (Version None)
Quarter: 2005Q3

REPORT INFORMATION
  Report Type: 
  Country: None (occurrence: None)
  Receive Date: 20050721
  Receipt Date: 20050401
  Transmission Date: 20060218
  Serious: No
  Sender: FDA-Public Use
  Company Number: US-BRISTOL-MYERS SQUIBB COMPANY-12918561

PATIENT
  Age: 61 Year
  Sex: Female

DRUGS (14)
  1. GLYBURIDE AND METFORMIN HCL [Suspect]
     Indication: DIABETES MELLITUS
     Dates: start: 20040507
  2. METHOCARBAMOL [Concomitant]
  3. LORTAB [Concomitant]
  4. ELAVIL [Concomitant]
  5. NEURONTIN [Concomitant]
  6. COZAAR [Concomitant]
  7. CYMBALTA [Concomitant]
  8. AMBIEN [Concomitant]
  9. BUMETANIDE [Concomitant]
  10. ZOCOR [Concomitant]
  11. PREMARIN [Concomitant]
  12. METHADONE HCL [Concomitant]
  13. LANTUS [Concomitant]
  14. SYNTHROID [Concomitant]

REACTIONS (1)
  - BLOOD GLUCOSE DECREASED [None]
